FAERS Safety Report 6031339-4 (Version None)
Quarter: 2009Q1

REPORT INFORMATION
  Report Type: 
  Country: None (occurrence: None)
  Receive Date: 20090108
  Receipt Date: 20090105
  Transmission Date: 20090719
  Serious: Yes (Hospitalization, Other)
  Sender: FDA-Public Use
  Company Number: US-BAYER-200836747NA

PATIENT
  Age: 28 Year
  Sex: Female

DRUGS (4)
  1. YASMIN [Suspect]
     Indication: CONTRACEPTION
     Route: 048
     Dates: start: 20080425, end: 20081001
  2. SOTRET (ACCUTANE) [Suspect]
     Indication: ACNE
     Dosage: TOTAL DAILY DOSE: 40 MG
     Route: 048
     Dates: start: 20080613, end: 20080713
  3. SOTRET (ACCUTANE) [Suspect]
     Dosage: TOTAL DAILY DOSE: 80 MG
     Route: 048
     Dates: start: 20080714, end: 20081001
  4. AMNESTEEM [Suspect]
     Indication: DRUG USE FOR UNKNOWN INDICATION

REACTIONS (12)
  - CHEST PAIN [None]
  - DEEP VEIN THROMBOSIS [None]
  - DYSPNOEA [None]
  - FALL [None]
  - LIMB DISCOMFORT [None]
  - MALAISE [None]
  - MUSCLE STRAIN [None]
  - OEDEMA PERIPHERAL [None]
  - PRURITUS [None]
  - PULMONARY EMBOLISM [None]
  - PULMONARY INFARCTION [None]
  - SCAB [None]
